FAERS Safety Report 5798510-8 (Version None)
Quarter: 2008Q2

REPORT INFORMATION
  Report Type: 
  Country: None (occurrence: None)
  Receive Date: 20080630
  Receipt Date: 20080616
  Transmission Date: 20081010
  Serious: No
  Sender: FDA-Public Use
  Company Number: CIP08000706

PATIENT
  Age: 71 Year
  Sex: Female

DRUGS (2)
  1. RISEDRONATE SODIUM [Suspect]
     Indication: OSTEOPOROSIS
     Dosage: 2.5 MG DAILY, ORAL
     Route: 048
     Dates: start: 20070510, end: 20070607
  2. KENTAN (LOXOPROFEN SODIUM) [Concomitant]

REACTIONS (1)
  - DYSGEUSIA [None]
